FAERS Safety Report 6676116-6 (Version None)
Quarter: 2010Q2

REPORT INFORMATION
  Report Type: 
  Country: None (occurrence: None)
  Receive Date: 20100412
  Receipt Date: 20100329
  Transmission Date: 20101027
  Serious: No
  Sender: FDA-Public Use
  Company Number: US-B.I. PHARMACEUTICALS,INC./RIDGEFIELD-2010-BP-01824BP

PATIENT
  Sex: Female

DRUGS (7)
  1. SPIRIVA [Suspect]
     Indication: CHRONIC OBSTRUCTIVE PULMONARY DISEASE
     Dosage: 18 MCG
     Route: 055
     Dates: start: 20081201
  2. SPIRIVA [Suspect]
     Indication: EMPHYSEMA
  3. CYPROHEPTADINE HCL [Concomitant]
     Indication: HYPERSENSITIVITY
  4. CYPROHEPTADINE HCL [Concomitant]
     Indication: WEIGHT DECREASED
  5. ALPRAZOLAM [Concomitant]
  6. LISINOPRIL [Concomitant]
  7. OMEPRAZOLE [Concomitant]

REACTIONS (4)
  - CATARACT [None]
  - DIPLOPIA [None]
  - HYPERTENSION [None]
  - VISION BLURRED [None]
